FAERS Safety Report 7373914-0 (Version None)
Quarter: 2011Q1

REPORT INFORMATION
  Report Type: 
  Country: None (occurrence: None)
  Receive Date: 20110325
  Receipt Date: 20110322
  Transmission Date: 20110831
  Serious: No
  Sender: FDA-Public Use
  Company Number: US-PFIZER INC-2011064005

PATIENT
  Age: 5 Year
  Sex: Male

DRUGS (1)
  1. CHILDREN'S ADVIL [Suspect]
     Indication: PYREXIA
     Dosage: 5 ML, UNK
     Route: 048

REACTIONS (5)
  - PRODUCT QUALITY ISSUE [None]
  - URTICARIA [None]
  - HYPERSENSITIVITY [None]
  - PRODUCT ODOUR ABNORMAL [None]
  - DRUG INEFFECTIVE [None]
